FAERS Safety Report 23230818 (Version 1)
Quarter: 2023Q4

REPORT INFORMATION
  Report Type: Report from Study
  Country: NL (occurrence: NL)
  Receive Date: 20231127
  Receipt Date: 20231127
  Transmission Date: 20240110
  Serious: Yes (Hospitalization)
  Sender: FDA-Public Use
  Company Number: NL-AstraZeneca-2023A266909

PATIENT
  Age: 5 Month
  Sex: Male
  Weight: 4.8 kg

DRUGS (3)
  1. SYNAGIS [Suspect]
     Active Substance: PALIVIZUMAB
     Indication: Premature baby
     Dosage: MONTHLY
     Route: 030
     Dates: start: 20230920
  2. ONDANSETRONSTROOP [Concomitant]
     Indication: Product used for unknown indication
     Dosage: 0.8MG/ML
  3. IRON [Concomitant]
     Active Substance: IRON
     Indication: Product used for unknown indication
     Dosage: IRON POLYSACCHARIDE COMPLEX: 20.0MG/ML

REACTIONS (1)
  - Gastroenteritis viral [Recovered/Resolved]
